FAERS Safety Report 12870605 (Version 1)
Quarter: 2016Q4

REPORT INFORMATION
  Report Type: Spontaneous
  Country: NL (occurrence: NL)
  Receive Date: 20161021
  Receipt Date: 20161021
  Transmission Date: 20170207
  Serious: Yes (Other)
  Sender: FDA-Public Use
  Company Number: NL-AUROBINDO-AUR-APL-2016-07676

PATIENT
  Age: 69 Year
  Sex: Female
  Weight: 69 kg

DRUGS (4)
  1. SAFLUTAN [Concomitant]
     Active Substance: TAFLUPROST
     Dosage: 1DD
     Route: 047
  2. FLUCONAZOLE CAPSULES, HARD 150MG [Suspect]
     Active Substance: FLUCONAZOLE
     Indication: VULVOVAGINAL MYCOTIC INFECTION
     Dosage: 1 DF, ONCE A DAY
     Route: 048
  3. DIAZEPAM 10 MG TABLET [Interacting]
     Active Substance: DIAZEPAM
     Indication: PAIN
     Dosage: 10 MG, ONCE A DAY
     Route: 048
     Dates: start: 20160527, end: 20160527
  4. TRUSOPT [Concomitant]
     Active Substance: DORZOLAMIDE HYDROCHLORIDE
     Indication: PRODUCT USED FOR UNKNOWN INDICATION
     Dosage: 1 DF, TWO TIMES A DAY
     Route: 047

REACTIONS (3)
  - Somnolence [Recovered/Resolved]
  - Loss of consciousness [Recovered/Resolved]
  - Drug interaction [Recovered/Resolved]

NARRATIVE: CASE EVENT DATE: 20160527
